FAERS Safety Report 9632634 (Version 1)
Quarter: 2013Q4

REPORT INFORMATION
  Report Type: Report from Study
  Country: DE (occurrence: DE)
  Receive Date: 20131018
  Receipt Date: 20131018
  Transmission Date: 20140711
  Serious: Yes (Death)
  Sender: FDA-Public Use
  Company Number: DE-TEVA-437300GER

PATIENT
  Sex: Female
  Weight: 54.9 kg

DRUGS (3)
  1. G-CSF (TEVAGRASTIM/RATIOGRASTIM) [Suspect]
     Indication: LEUKOPENIA
     Route: 058
     Dates: start: 20130919, end: 20130922
  2. CYLOPHOSPHAMID [Concomitant]
     Dosage: 1430 MG/M2 DAILY; CYCLUS DAY 1
  3. DOCETAXEL [Concomitant]
     Dosage: CYCLUS DAY 1

REACTIONS (1)
  - Pulmonary fibrosis [Fatal]
